FAERS Safety Report 7458360-3 (Version None)
Quarter: 2011Q2

REPORT INFORMATION
  Report Type: 
  Country: None (occurrence: None)
  Receive Date: 20110504
  Receipt Date: 20110429
  Transmission Date: 20111010
  Serious: Yes (Death, Hospitalization)
  Sender: FDA-Public Use
  Company Number: A0870458A

PATIENT
  Age: 60 Year
  Sex: Female
  Weight: 83.8 kg

DRUGS (17)
  1. AVANDIA [Suspect]
     Route: 048
     Dates: start: 19950101, end: 20070516
  2. LASIX [Concomitant]
  3. NITROGLYCERIN [Concomitant]
  4. HUMULIN R [Concomitant]
  5. GLUCOPHAGE [Concomitant]
  6. NITRO-BID [Concomitant]
  7. PRINIVIL [Concomitant]
  8. ASPIRIN [Concomitant]
  9. ZAROXOLYN [Concomitant]
  10. DIGOXIN [Concomitant]
  11. LANTUS [Concomitant]
  12. TRICOR [Concomitant]
  13. FLEXERIL [Concomitant]
  14. BETAPACE [Concomitant]
  15. NEXIUM [Concomitant]
  16. ZETIA [Concomitant]
  17. ROBAXIN [Concomitant]

REACTIONS (3)
  - MYOCARDIAL INFARCTION [None]
  - SUPRAVENTRICULAR TACHYCARDIA [None]
  - DEATH [None]
